FAERS Safety Report 9805508 (Version 2)
Quarter: 2014Q1

REPORT INFORMATION
  Report Type: Spontaneous
  Country: US (occurrence: None)
  Receive Date: 20140107
  Receipt Date: 20140210
  Transmission Date: 20141002
  Serious: Yes (Hospitalization)
  Sender: FDA-Public Use
  Company Number: AUR-APL-2013-10569

PATIENT
  Age: 66 Year
  Sex: Male

DRUGS (22)
  1. SIMVASTATIN (SIMVASTATIN) [Suspect]
     Indication: PRODUCT USED FOR UNKNOWN INDICATION
     Route: 048
     Dates: start: 201202, end: 20131209
  2. LOPID (GEMFIBROZIL) [Suspect]
     Indication: PRODUCT USED FOR UNKNOWN INDICATION
     Dosage: 120 MG (60 MG 2 IN 1 D)
     Dates: end: 20131209
  3. VICTOZA (LIRAGLUTIDE) [Suspect]
     Indication: TYPE 2 DIABETES MELLITUS
     Route: 058
     Dates: start: 20131028, end: 201311
  4. FINASTERIDE (FINASTERIDE) [Concomitant]
  5. TERAZOSIN HYDROCHLORIDE (TERAZOSIN HYDROCHOLORIDE) [Concomitant]
  6. GABAPENTIN (GABAPENTIN) [Concomitant]
  7. EFFIENT (PRASUGREL HYDROCHLORIDE) [Concomitant]
  8. MAXZIDE (DYAZIDE) [Concomitant]
  9. METFORMIN HYDROCHLORIDE (METFORMIN HYDROCHLORIDE) [Concomitant]
  10. LEVEMIR FLEXPEN (INSULIN DETEMIR) [Concomitant]
  11. NOVOLOG FLEXPEN (INSULIN ASPART) [Concomitant]
  12. TYLENOL ARTHRITIS (PARACETAMOL) [Concomitant]
  13. CENTRUM SILVER (CENTRUM SILVER/02363801) [Concomitant]
  14. MIDRIN (MIDRID) [Concomitant]
  15. NITROLINGUAL-PUMPSPRAY (GLYCERL TRINITRATE) [Concomitant]
  16. ASPIR-LOW (ACETYLSALICYLIC ACID) [Concomitant]
  17. OMEPRAZOLE (OMEPRAZOLE) [Concomitant]
  18. LORAZEPAM (LORAZEPAM) [Concomitant]
  19. HYDROCHLOROTHIAZIDE (HYDROCHLOROTHIAZIDE [Concomitant]
  20. DICHLORALPHENAZONE (DICHLORALPHENAZONE) [Concomitant]
  21. ISOMETHEPTENE (ISOMETHEPTENE) [Concomitant]
  22. VITAMIN  C (ASCORBIC ACID) [Concomitant]

REACTIONS (2)
  - Rhabdomyolysis [None]
  - Neuralgia [None]
